FAERS Safety Report 13291192 (Version 1)
Quarter: 2017Q1

REPORT INFORMATION
  Report Type: Spontaneous
  Country: US (occurrence: US)
  Receive Date: 20170302
  Receipt Date: 20170302
  Transmission Date: 20170428
  Serious: Yes (Other)
  Sender: FDA-Public Use
  Company Number: None

PATIENT
  Age: 70 Year
  Sex: Male
  Weight: 83.25 kg

DRUGS (5)
  1. ASPIRIN. [Concomitant]
     Active Substance: ASPIRIN
  2. ESCITALOPRAM [Suspect]
     Active Substance: ESCITALOPRAM OXALATE
     Indication: ANXIETY
     Dosage: ?          QUANTITY:30 TABLET(S);?
     Route: 048
     Dates: start: 20170215, end: 20170216
  3. METAPROLOL [Concomitant]
     Active Substance: METOPROLOL
  4. FOSONOPRIL [Concomitant]
  5. MULTI VITAMIN [Concomitant]
     Active Substance: VITAMINS

REACTIONS (5)
  - Chest discomfort [None]
  - Hypertension [None]
  - Palpitations [None]
  - Burning sensation [None]
  - Serotonin syndrome [None]

NARRATIVE: CASE EVENT DATE: 20170217
